FAERS Safety Report 6149219-2 (Version None)
Quarter: 2009Q2

REPORT INFORMATION
  Report Type: 
  Country: None (occurrence: None)
  Receive Date: 20090409
  Receipt Date: 20090401
  Transmission Date: 20091009
  Serious: Yes (Other)
  Sender: FDA-Public Use
  Company Number: US-BAXTER-2009BH005206

PATIENT
  Age: 5 Year
  Sex: Male
  Weight: 22 kg

DRUGS (6)
  1. GAMMAGARD LIQUID [Suspect]
     Indication: KAWASAKI'S DISEASE
     Route: 042
     Dates: start: 20090309, end: 20090311
  2. CEFTRIAXONE [Suspect]
     Indication: DRUG USE FOR UNKNOWN INDICATION
     Route: 042
     Dates: start: 20090310, end: 20090312
  3. IBUPROFEN [Concomitant]
     Indication: PYREXIA
  4. ACETAMINOPHEN [Concomitant]
     Dates: start: 20090309, end: 20090311
  5. ACETYLSALICYLIC ACID SRT [Concomitant]
     Route: 048
     Dates: start: 20090309, end: 20090313
  6. FAMOTIDINE [Concomitant]
     Route: 042
     Dates: start: 20090310, end: 20090313

REACTIONS (1)
  - HAEMOLYSIS [None]
